FAERS Safety Report 10339641 (Version 1)
Quarter: 2014Q3

REPORT INFORMATION
  Report Type: Spontaneous
  Country: IL (occurrence: None)
  Receive Date: 20140723
  Receipt Date: 20140723
  Transmission Date: 20150326
  Serious: Yes (Hospitalization)
  Sender: FDA-Public Use
  Company Number: None

PATIENT
  Age: 64 Year
  Sex: Male
  Weight: 92 kg

DRUGS (2)
  1. DAUNORUBICIN [Suspect]
     Active Substance: DAUNORUBICIN
     Dates: end: 20120531
  2. CYTARABINE. [Suspect]
     Active Substance: CYTARABINE
     Dates: end: 20120604

REACTIONS (3)
  - Culture urine positive [None]
  - Escherichia test positive [None]
  - Blood culture positive [None]

NARRATIVE: CASE EVENT DATE: 20120609
